FAERS Safety Report 7129310-4 (Version None)
Quarter: 2010Q4

REPORT INFORMATION
  Report Type: 
  Country: None (occurrence: None)
  Receive Date: 20101130
  Receipt Date: 20101123
  Transmission Date: 20110411
  Serious: No
  Sender: FDA-Public Use
  Company Number: US-PFIZER INC-2010156161

PATIENT
  Age: 69 Year
  Sex: Female

DRUGS (2)
  1. LOPID [Suspect]
  2. PROTONIX [Suspect]

REACTIONS (4)
  - DRUG HYPERSENSITIVITY [None]
  - NAUSEA [None]
  - URTICARIA [None]
  - VOMITING [None]
